FAERS Safety Report 6835900-6 (Version None)
Quarter: 2010Q3

REPORT INFORMATION
  Report Type: 
  Country: None (occurrence: None)
  Receive Date: 20100712
  Receipt Date: 20100712
  Transmission Date: 20110219
  Serious: Yes (Other)
  Sender: FDA-Public Use
  Company Number: None

PATIENT
  Age: 55 Year
  Sex: Male
  Weight: 116.1 kg

DRUGS (1)
  1. TOPIRAMATE [Suspect]
     Indication: BIPOLAR I DISORDER
     Dosage: 25 MG BID PO
     Route: 048
     Dates: start: 20090819, end: 20090902

REACTIONS (2)
  - DIPLOPIA [None]
  - VISION BLURRED [None]
